FAERS Safety Report 4683179-6 (Version None)
Quarter: 2005Q2

REPORT INFORMATION
  Report Type: 
  Country: None (occurrence: None)
  Receive Date: 20050602
  Receipt Date: 20050405
  Transmission Date: 20051028
  Serious: No
  Sender: FDA-Public Use
  Company Number: USA050494927

PATIENT
  Age: 67 Year
  Sex: Female

DRUGS (4)
  1. CYMBALTA [Suspect]
     Indication: DEPRESSION
     Dosage: 60 MG DAY
     Dates: start: 20040925
  2. REMERON (MIRTAZAPINE ORIFARM) [Concomitant]
  3. WELLBUTRIN [Concomitant]
  4. TYLENOL [Concomitant]

REACTIONS (2)
  - DIZZINESS [None]
  - VERTIGO [None]
